FAERS Safety Report 6139336-5 (Version None)
Quarter: 2009Q2

REPORT INFORMATION
  Report Type: 
  Country: None (occurrence: None)
  Receive Date: 20090401
  Receipt Date: 20090323
  Transmission Date: 20091009
  Serious: Yes (Other)
  Sender: FDA-Public Use
  Company Number: PHEH2009US01677

PATIENT
  Sex: Male
  Weight: 81.8 kg

DRUGS (1)
  1. EXJADE [Suspect]
     Indication: IRON OVERLOAD
     Dosage: 500 MG, TID
     Route: 048
     Dates: start: 20081001, end: 20081029

REACTIONS (4)
  - BALANCE DISORDER [None]
  - NAUSEA [None]
  - SPEECH DISORDER [None]
  - VOMITING [None]
